FAERS Safety Report 5531642-8 (Version None)
Quarter: 2007Q4

REPORT INFORMATION
  Report Type: 
  Country: None (occurrence: None)
  Receive Date: 20071203
  Receipt Date: 20071127
  Transmission Date: 20080405
  Serious: Yes (Death, Other)
  Sender: FDA-Public Use
  Company Number: US-BAYER-200713583BCC

PATIENT
  Age: 100 Year
  Sex: Female
  Weight: 31 kg

DRUGS (3)
  1. MILK OF MAGNESIA TAB [Suspect]
     Indication: CONSTIPATION
     Route: 048
     Dates: start: 20071026
  2. PAIN RELIEVER [Concomitant]
  3. IRON SUPPLEMENTS [Concomitant]

REACTIONS (2)
  - DEATH [None]
  - RECTAL HAEMORRHAGE [None]
